FAERS Safety Report 24077890 (Version 1)
Quarter: 2024Q3

REPORT INFORMATION
  Report Type: Spontaneous
  Country: CH (occurrence: None)
  Receive Date: 20240711
  Receipt Date: 20240711
  Transmission Date: 20241016
  Serious: Yes (Other)
  Sender: UNICHEM
  Company Number: CH-Unichem Pharmaceuticals (USA) Inc-UCM202407-000859

PATIENT
  Age: 7 Year
  Sex: Female

DRUGS (2)
  1. LAMOTRIGINE [Suspect]
     Active Substance: LAMOTRIGINE
     Indication: Jeavons syndrome
     Dosage: UNKNOWN
  2. VALPROIC ACID [Concomitant]
     Active Substance: VALPROIC ACID
     Indication: Jeavons syndrome
     Dosage: UNKNOWN

REACTIONS (9)
  - Kawasaki^s disease [Recovering/Resolving]
  - Encephalopathy [Recovering/Resolving]
  - Acute kidney injury [Recovering/Resolving]
  - Cell death [Recovering/Resolving]
  - Toxic shock syndrome [Recovering/Resolving]
  - Acute hepatic failure [Recovering/Resolving]
  - Drug reaction with eosinophilia and systemic symptoms [Recovering/Resolving]
  - Tubulointerstitial nephritis [Recovering/Resolving]
  - Blood disorder [Recovering/Resolving]
